FAERS Safety Report 23871963 (Version 1)
Quarter: 2024Q2

REPORT INFORMATION
  Report Type: Spontaneous
  Country: US (occurrence: US)
  Receive Date: 20240520
  Receipt Date: 20240520
  Transmission Date: 20240715
  Serious: Yes (Other)
  Sender: FDA-Public Use
  Company Number: US-GILEAD-2024-0673334

PATIENT

DRUGS (1)
  1. TRUVADA [Suspect]
     Active Substance: EMTRICITABINE\TENOFOVIR DISOPROXIL FUMARATE
     Indication: Product used for unknown indication
     Dosage: UNK
     Route: 048
     Dates: start: 20150129, end: 20200324

REACTIONS (5)
  - Multiple fractures [Unknown]
  - Renal failure [Unknown]
  - Acute kidney injury [Unknown]
  - Vitamin D deficiency [Unknown]
  - Bone density decreased [Unknown]
